FAERS Safety Report 21960538 (Version 1)
Quarter: 2023Q1

REPORT INFORMATION
  Report Type: Spontaneous
  Country: JP (occurrence: JP)
  Receive Date: 20230207
  Receipt Date: 20230207
  Transmission Date: 20230418
  Serious: Yes (Other)
  Sender: FDA-Public Use
  Company Number: JP-002147023-NVSJ2023JP002301

PATIENT
  Age: 54 Year
  Sex: Female

DRUGS (1)
  1. FINGOLIMOD HYDROCHLORIDE [Suspect]
     Active Substance: FINGOLIMOD HYDROCHLORIDE
     Indication: Multiple sclerosis relapse
     Dosage: UNK
     Route: 065

REACTIONS (3)
  - Arrhythmia [Unknown]
  - Cognitive disorder [Unknown]
  - Dysstasia [Unknown]
